FAERS Safety Report 5591146-3 (Version None)
Quarter: 2008Q1

REPORT INFORMATION
  Report Type: 
  Country: None (occurrence: None)
  Receive Date: 20080110
  Receipt Date: 20080110
  Transmission Date: 20080703
  Serious: Yes (Life-Threatening, Hospitalization)
  Sender: FDA-Public Use
  Company Number: None

PATIENT
  Age: 45 Year
  Sex: Male
  Weight: 114 kg

DRUGS (1)
  1. VARENICLINE 1MG TABLETS PFIZER [Suspect]
     Indication: SMOKING CESSATION THERAPY
     Dosage: 1MG DAILY PO
     Route: 048

REACTIONS (5)
  - DRUG ABUSE [None]
  - MARITAL PROBLEM [None]
  - OVERDOSE [None]
  - SKIN LACERATION [None]
  - SUICIDE ATTEMPT [None]
